FAERS Safety Report 8561949-1 (Version None)
Quarter: 2012Q3

REPORT INFORMATION
  Report Type: 
  Country: None (occurrence: None)
  Receive Date: 20120802
  Receipt Date: 20080630
  Transmission Date: 20120928
  Serious: Yes (Other)
  Sender: FDA-Public Use
  Company Number: PHHY2008CZ043985

PATIENT

DRUGS (2)
  1. DICLOFENAC SODIUM [Suspect]
  2. FORMOTEROL FUMARATE [Suspect]
     Indication: ASTHMA
     Dosage: 12 UG, UNK

REACTIONS (2)
  - INFECTION [None]
  - THROAT IRRITATION [None]
